FAERS Safety Report 6569557-9 (Version None)
Quarter: 2010Q1

REPORT INFORMATION
  Report Type: 
  Country: None (occurrence: None)
  Receive Date: 20100204
  Receipt Date: 20100126
  Transmission Date: 20100710
  Serious: Yes (Other)
  Sender: FDA-Public Use
  Company Number: JP-ASTRAZENECA-2010SE04794

PATIENT

DRUGS (3)
  1. SEROQUEL [Suspect]
     Route: 048
     Dates: start: 20091101
  2. ROHIPNOL [Suspect]
  3. NYCLIN [Concomitant]

REACTIONS (1)
  - ANAEMIA [None]
